FAERS Safety Report 5048004-2 (Version None)
Quarter: 2006Q3

REPORT INFORMATION
  Report Type: 
  Country: None (occurrence: None)
  Receive Date: 20060711
  Receipt Date: 20041103
  Transmission Date: 20061208
  Serious: Yes (Death, Hospitalization, Other)
  Sender: FDA-Public Use
  Company Number: PHNU2004DE03729

PATIENT
  Sex: Female
  Weight: 60 kg

DRUGS (1)
  1. ZOMETA [Suspect]
     Indication: METASTASES TO BONE
     Route: 042

REACTIONS (7)
  - MALIGNANT NEOPLASM PROGRESSION [None]
  - OSTEONECROSIS [None]
  - PERIODONTITIS [None]
  - SEQUESTRECTOMY [None]
  - SINUS PERFORATION [None]
  - SWELLING [None]
  - TOOTH EXTRACTION [None]
